FAERS Safety Report 25312326 (Version 1)
Quarter: 2025Q2

REPORT INFORMATION
  Report Type: Spontaneous
  Country: RO (occurrence: RO)
  Receive Date: 20250514
  Receipt Date: 20250514
  Transmission Date: 20250716
  Serious: Yes (Death, Hospitalization, Other)
  Sender: Steriscience PTE
  Company Number: RO-STERISCIENCE B.V.-2025-ST-000894

PATIENT
  Age: 79 Year
  Sex: Female

DRUGS (5)
  1. OXACILLIN [Suspect]
     Active Substance: OXACILLIN SODIUM
     Indication: Staphylococcal infection
     Dosage: 500 MILLIGRAM, Q6H
     Route: 065
     Dates: start: 2022
  2. EPINEPHRINE [Suspect]
     Active Substance: EPINEPHRINE
     Indication: Anaphylactic reaction
     Dates: start: 2022
  3. HYDROCORTISONE HEMISUCCINATE [Suspect]
     Active Substance: HYDROCORTISONE HEMISUCCINATE
     Indication: Anaphylactic reaction
     Route: 042
     Dates: start: 2022
  4. IVERMECTIN [Concomitant]
     Active Substance: IVERMECTIN
     Indication: Scabies
     Route: 065
     Dates: start: 2022
  5. SULFUR [Concomitant]
     Active Substance: SULFUR
     Indication: Scabies
     Route: 065
     Dates: start: 2022

REACTIONS (2)
  - Cardio-respiratory arrest [Fatal]
  - Drug ineffective [Fatal]

NARRATIVE: CASE EVENT DATE: 20220101
